FAERS Safety Report 8070699-X (Version None)
Quarter: 2012Q1

REPORT INFORMATION
  Report Type: 
  Country: None (occurrence: None)
  Receive Date: 20120125
  Receipt Date: 20120123
  Transmission Date: 20120608
  Serious: Yes (Death, Hospitalization)
  Sender: FDA-Public Use
  Company Number: PHEH2011US012853

PATIENT
  Sex: Female
  Weight: 59 kg

DRUGS (2)
  1. ANTIARRHYTHMICS [Concomitant]
  2. FEMARA [Suspect]
     Indication: BREAST CANCER
     Dosage: 2.5 MG, DAILY
     Route: 048
     Dates: start: 20101209, end: 20111004

REACTIONS (1)
  - MYOCARDIAL INFARCTION [None]
